FAERS Safety Report 4913530-0 (Version None)
Quarter: 2006Q1

REPORT INFORMATION
  Report Type: 
  Country: None (occurrence: None)
  Receive Date: 20060210
  Receipt Date: 20060126
  Transmission Date: 20060701
  Serious: Yes (Death)
  Sender: FDA-Public Use
  Company Number: PHHO2005JP16906

PATIENT
  Age: 76 Year
  Sex: Female
  Weight: 53.0255 kg

DRUGS (16)
  1. VISUDYNE [Suspect]
     Indication: MACULAR DEGENERATION
     Dosage: 6 MG/M^2 ONCE IV
     Route: 042
     Dates: start: 20041027, end: 20041027
  2. TETRAMIDE [Concomitant]
  3. PZC [Concomitant]
  4. ALPRAZOLAM [Concomitant]
  5. SILECE [Concomitant]
  6. LENDORMIN [Concomitant]
  7. MARZULENES [Concomitant]
  8. LAC B [Concomitant]
  9. SELBEX [Concomitant]
  10. ALTAT [Concomitant]
  11. PANTOSIN [Concomitant]
  12. MAGNESIUM  OXIDE [Concomitant]
  13. BEZATOL [Concomitant]
  14. MUCODYNE [Concomitant]
  15. CATALIN [Concomitant]
  16. HYALEIN [Concomitant]

REACTIONS (3)
  - RETINAL HAEMORRHAGE [None]
  - SUBARACHNOID HAEMORRHAGE [None]
  - VISUAL ACUITY REDUCED [None]
